FAERS Safety Report 23867949 (Version 1)
Quarter: 2024Q2

REPORT INFORMATION
  Report Type: Spontaneous
  Country: PL (occurrence: PL)
  Receive Date: 20240517
  Receipt Date: 20240517
  Transmission Date: 20240716
  Serious: Yes (Other)
  Sender: FDA-Public Use
  Company Number: PL-ORG100014127-2024000132

PATIENT
  Age: 1 Year
  Sex: Female

DRUGS (7)
  1. MITOTANE [Suspect]
     Active Substance: MITOTANE
     Indication: Adjuvant therapy
  2. MITOTANE [Suspect]
     Active Substance: MITOTANE
     Indication: Adjuvant therapy
  3. MITOTANE [Suspect]
     Active Substance: MITOTANE
     Indication: Adjuvant therapy
  4. ETOPOSIDE [Concomitant]
     Active Substance: ETOPOSIDE
     Indication: Adjuvant therapy
  5. DOXORUBICIN [Concomitant]
     Active Substance: DOXORUBICIN
     Indication: Adjuvant therapy
  6. CISPLATIN [Concomitant]
     Active Substance: CISPLATIN
     Indication: Adjuvant therapy
  7. HYDROCORTISONE [Concomitant]
     Active Substance: HYDROCORTISONE
     Indication: Supplementation therapy
     Dosage: 18.2 MG/M2/DAY

REACTIONS (7)
  - Dysmetria [Recovered/Resolved]
  - Precocious puberty [Unknown]
  - Tendon disorder [Unknown]
  - Pain in extremity [Recovered/Resolved]
  - Tremor [Recovering/Resolving]
  - Gait disturbance [Recovered/Resolved]
  - Off label use [Recovered/Resolved]
